FAERS Safety Report 22095464 (Version 1)
Quarter: 2023Q1

REPORT INFORMATION
  Report Type: Spontaneous
  Country: US (occurrence: US)
  Receive Date: 20230314
  Receipt Date: 20230314
  Transmission Date: 20230417
  Serious: No
  Sender: FDA-Public Use
  Company Number: US-PFIZER INC-PV202300045893

PATIENT
  Age: 58 Year
  Sex: Male

DRUGS (1)
  1. NURTEC ODT [Suspect]
     Active Substance: RIMEGEPANT SULFATE
     Indication: Headache
     Dosage: PLACE 1 TABLET ON OR UNDER THE TONGUE DAILY AS NEEDED NOT TO EXCEED 1 TAB IN 24HRS
     Route: 048

REACTIONS (3)
  - Abnormal dreams [Recovered/Resolved]
  - Fear [Unknown]
  - Off label use [Unknown]
